FAERS Safety Report 24939375 (Version 2)
Quarter: 2025Q1

REPORT INFORMATION
  Report Type: Spontaneous
  Country: US (occurrence: US)
  Receive Date: 20250206
  Receipt Date: 20250217
  Transmission Date: 20250408
  Serious: No
  Sender: ABBVIE
  Company Number: US-ABBVIE-6122398

PATIENT

DRUGS (2)
  1. DALVANCE [Suspect]
     Active Substance: DALBAVANCIN HYDROCHLORIDE
     Indication: Osteomyelitis
     Route: 065
     Dates: start: 20250113
  2. DALVANCE [Suspect]
     Active Substance: DALBAVANCIN HYDROCHLORIDE
     Indication: Osteomyelitis
     Route: 065
     Dates: start: 20250124

REACTIONS (1)
  - Off label use [Unknown]
